FAERS Safety Report 8278758-3 (Version None)
Quarter: 2012Q2

REPORT INFORMATION
  Report Type: 
  Country: None (occurrence: None)
  Receive Date: 20120412
  Receipt Date: 20110715
  Transmission Date: 20120825
  Serious: No
  Sender: FDA-Public Use
  Company Number: US-ASTRAZENECA-2011SE26769

PATIENT
  Age: 58 Year
  Sex: Female

DRUGS (3)
  1. PRILOSEC [Suspect]
     Route: 048
  2. NEXIUM [Suspect]
     Route: 048
  3. CRESTOR [Suspect]
     Route: 048

REACTIONS (6)
  - HYPERTENSION [None]
  - PAIN [None]
  - NEUROPATHY PERIPHERAL [None]
  - MIGRAINE [None]
  - FIBROMYALGIA [None]
  - DIABETES MELLITUS [None]
